FAERS Safety Report 8062049-X (Version None)
Quarter: 2012Q1

REPORT INFORMATION
  Report Type: 
  Country: None (occurrence: None)
  Receive Date: 20120123
  Receipt Date: 20120112
  Transmission Date: 20120608
  Serious: Yes (Other)
  Sender: FDA-Public Use
  Company Number: US-JNJFOC-20120104777

PATIENT
  Sex: Female

DRUGS (1)
  1. REMICADE [Suspect]
     Indication: RHEUMATOID ARTHRITIS
     Route: 042

REACTIONS (6)
  - ALOPECIA [None]
  - HEART RATE INCREASED [None]
  - ANXIETY [None]
  - PALPITATIONS [None]
  - HOT FLUSH [None]
  - BREAST DISCOMFORT [None]
